FAERS Safety Report 9761043 (Version 1)
Quarter: 2013Q4

REPORT INFORMATION
  Report Type: Spontaneous
  Country: US (occurrence: US)
  Receive Date: 20131216
  Receipt Date: 20131216
  Transmission Date: 20140711
  Serious: No
  Sender: FDA-Public Use
  Company Number: US-PFIZER INC-2013356182

PATIENT
  Sex: Female

DRUGS (4)
  1. RELPAX [Suspect]
     Indication: MIGRAINE
     Dosage: UNK, AS NEEDED
     Route: 048
     Dates: end: 201304
  2. LORAZEPAM [Concomitant]
     Dosage: 0.5 MG, UNK
  3. FIORICET [Concomitant]
     Dosage: UNK
  4. METHOCARBAMOL [Concomitant]
     Indication: MUSCLE RELAXANT THERAPY
     Dosage: UNK

REACTIONS (2)
  - Migraine [Unknown]
  - Vomiting [Recovered/Resolved]
